FAERS Safety Report 10021852 (Version 2)
Quarter: 2014Q2

REPORT INFORMATION
  Report Type: Spontaneous
  Country: US (occurrence: US)
  Receive Date: 20140319
  Receipt Date: 20140428
  Transmission Date: 20141212
  Serious: Yes (Death)
  Sender: FDA-Public Use
  Company Number: US-JNJFOC-20140306479

PATIENT
  Sex: Male

DRUGS (1)
  1. ZYTIGA [Suspect]
     Indication: PROSTATE CANCER
     Dosage: STRENGTH- 250 MG
     Route: 048
     Dates: start: 20130416, end: 20131007

REACTIONS (1)
  - Death [Fatal]
